FAERS Safety Report 15880917 (Version 2)
Quarter: 2019Q3

REPORT INFORMATION
  Report Type: Spontaneous
  Country: CO (occurrence: CO)
  Receive Date: 20190128
  Receipt Date: 20190927
  Transmission Date: 20191004
  Serious: Yes (Death, Hospitalization, Other)
  Sender: FDA-Public Use
  Company Number: CO-PFIZER INC-2019035172

PATIENT
  Age: 58 Year
  Sex: Female

DRUGS (1)
  1. REAMPLA [Suspect]
     Active Substance: PALBOCICLIB
     Indication: BREAST CANCER METASTATIC
     Dosage: 125 MG, UNK
     Route: 048
     Dates: start: 20181224, end: 201903

REACTIONS (5)
  - Abdominal pain upper [Unknown]
  - Death [Fatal]
  - Infection [Unknown]
  - Abdominal discomfort [Unknown]
  - Breast swelling [Unknown]

NARRATIVE: CASE EVENT DATE: 20190330
